FAERS Safety Report 7995728-0 (Version None)
Quarter: 2011Q4

REPORT INFORMATION
  Report Type: 
  Country: None (occurrence: None)
  Receive Date: 20111220
  Receipt Date: 20111206
  Transmission Date: 20120403
  Serious: Yes (Other)
  Sender: FDA-Public Use
  Company Number: IN-CELGENEUS-078-21880-11120869

PATIENT
  Age: 38 Year
  Sex: Male

DRUGS (6)
  1. ZOLEDRONIC [Concomitant]
     Route: 041
  2. WARFARIN SODIUM [Concomitant]
     Dosage: 1 MILLIGRAM
     Route: 065
  3. PREDNISOLONE [Concomitant]
     Dosage: 100 MILLIGRAM
     Route: 065
  4. ASPIRIN [Concomitant]
     Dosage: 100 MILLIGRAM
     Route: 065
  5. REVLIMID [Suspect]
     Dosage: 10 MILLIGRAM
     Route: 048
  6. MELPHALAN HYDROCHLORIDE [Concomitant]
     Dosage: 10 MILLIGRAM
     Route: 065

REACTIONS (2)
  - HYPERBILIRUBINAEMIA [None]
  - CHOLESTASIS [None]
